FAERS Safety Report 9201129 (Version 1)
Quarter: 2013Q2

REPORT INFORMATION
  Report Type: Spontaneous
  Country: US (occurrence: US)
  Receive Date: 20130401
  Receipt Date: 20130401
  Transmission Date: 20140414
  Serious: No
  Sender: FDA-Public Use
  Company Number: US-PFIZER INC-2013099560

PATIENT
  Age: 29 Year
  Sex: Male
  Weight: 72.56 kg

DRUGS (1)
  1. VIAGRA [Suspect]
     Indication: ERECTILE DYSFUNCTION
     Dosage: 1 TABLET, AS NEEDED
     Route: 048
     Dates: start: 2012

REACTIONS (2)
  - Painful erection [Not Recovered/Not Resolved]
  - Erection increased [Unknown]
